FAERS Safety Report 19418524 (Version 6)
Quarter: 2021Q3

REPORT INFORMATION
  Report Type: Spontaneous
  Country: US (occurrence: US)
  Receive Date: 20210615
  Receipt Date: 20210907
  Transmission Date: 20211014
  Serious: Yes (Hospitalization, Other)
  Sender: FDA-Public Use
  Company Number: US-GLOBAL BLOOD THERAPEUTICS INC-US-GBT-21-01476

PATIENT
  Age: 21 Year
  Sex: Female

DRUGS (1)
  1. OXBRYTA [Suspect]
     Active Substance: VOXELOTOR
     Indication: SICKLE CELL DISEASE
     Route: 048
     Dates: start: 20210421, end: 20210803

REACTIONS (14)
  - Sickle cell anaemia with crisis [Recovered/Resolved]
  - Haemoglobin increased [Recovering/Resolving]
  - Pain [Recovering/Resolving]
  - Abdominal pain upper [Recovered/Resolved]
  - Nausea [Not Recovered/Not Resolved]
  - Abdominal pain [Recovered/Resolved]
  - Pain in extremity [Not Recovered/Not Resolved]
  - Rash [Unknown]
  - Malaise [Not Recovered/Not Resolved]
  - Product dose omission issue [Unknown]
  - Vomiting [Unknown]
  - Sickle cell anaemia with crisis [Recovered/Resolved]
  - Headache [Recovering/Resolving]
  - Nasopharyngitis [Recovering/Resolving]

NARRATIVE: CASE EVENT DATE: 2021
